FAERS Safety Report 6531407-4 (Version None)
Quarter: 2010Q1

REPORT INFORMATION
  Report Type: 
  Country: None (occurrence: None)
  Receive Date: 20100108
  Receipt Date: 20091109
  Transmission Date: 20100710
  Serious: No
  Sender: FDA-Public Use
  Company Number: A0816089A

PATIENT
  Age: 58 Year
  Sex: Female

DRUGS (7)
  1. TYKERB [Suspect]
     Indication: BREAST CANCER
     Dosage: 1000MG PER DAY
     Route: 048
     Dates: start: 20091024
  2. CELEBREX [Concomitant]
  3. CRESTOR [Concomitant]
  4. EFFEXOR [Concomitant]
  5. CYCLOBENZAPRINE HCL [Concomitant]
  6. BONIVA [Concomitant]
  7. ROCEPHIN [Concomitant]

REACTIONS (7)
  - AGEUSIA [None]
  - ERYTHEMA [None]
  - GASTROINTESTINAL DISORDER [None]
  - MOUTH ULCERATION [None]
  - NASAL ULCER [None]
  - NAUSEA [None]
  - RASH [None]
